FAERS Safety Report 7876070-5 (Version None)
Quarter: 2011Q4

REPORT INFORMATION
  Report Type: 
  Country: None (occurrence: None)
  Receive Date: 20111031
  Receipt Date: 20111024
  Transmission Date: 20120403
  Serious: Yes (Other)
  Sender: FDA-Public Use
  Company Number: FR-JNJFOC-20111012873

PATIENT

DRUGS (23)
  1. MESNA [Suspect]
     Indication: LYMPHOMA
     Route: 042
  2. MESNA [Suspect]
     Route: 042
  3. BLEOMYCIN SULFATE [Suspect]
     Route: 042
  4. DOXORUBICIN HCL [Suspect]
     Route: 042
  5. MESNA [Suspect]
     Route: 042
  6. ELDISINE [Suspect]
     Route: 065
  7. BLEOMYCIN SULFATE [Suspect]
     Route: 042
  8. DOXORUBICIN HCL [Suspect]
     Indication: LYMPHOMA
     Route: 042
  9. CYCLOPHOSPHAMIDE [Suspect]
     Route: 065
  10. MESNA [Suspect]
     Route: 042
  11. ELDISINE [Suspect]
     Route: 065
  12. BLEOMYCIN SULFATE [Suspect]
     Indication: LYMPHOMA
     Route: 042
  13. DOXORUBICIN HCL [Suspect]
     Route: 042
  14. CYCLOPHOSPHAMIDE [Suspect]
     Route: 065
  15. ELDISINE [Suspect]
     Route: 065
  16. BLEOMYCIN SULFATE [Suspect]
     Route: 042
  17. CYCLOPHOSPHAMIDE [Suspect]
     Indication: LYMPHOMA
     Route: 065
  18. ELDISINE [Suspect]
     Indication: LYMPHOMA
     Route: 065
  19. PREDNISONE [Suspect]
     Indication: LYMPHOMA
     Route: 048
  20. DOXORUBICIN HCL [Suspect]
     Route: 042
  21. CYCLOPHOSPHAMIDE [Suspect]
     Route: 065
  22. METHOTREXATE [Suspect]
     Indication: LYMPHOMA
     Route: 037
  23. NEUPOGEN [Concomitant]
     Route: 065

REACTIONS (1)
  - CEREBROVASCULAR ACCIDENT [None]
